FAERS Safety Report 6730557-7 (Version None)
Quarter: 2010Q2

REPORT INFORMATION
  Report Type: 
  Country: None (occurrence: None)
  Receive Date: 20100518
  Receipt Date: 20100517
  Transmission Date: 20101027
  Serious: Yes (Death)
  Sender: FDA-Public Use
  Company Number: DE-B.I. PHARMACEUTICALS,INC./RIDGEFIELD-2010-DE-02714DE

PATIENT
  Age: 93 Year
  Sex: Male

DRUGS (2)
  1. AGGRENOX [Suspect]
  2. MEDICATIONS [Concomitant]

REACTIONS (1)
  - DEATH [None]
